FAERS Safety Report 6278527-X (Version None)
Quarter: 2009Q3

REPORT INFORMATION
  Report Type: 
  Country: None (occurrence: None)
  Receive Date: 20090722
  Receipt Date: 20080623
  Transmission Date: 20100115
  Serious: No
  Sender: FDA-Public Use
  Company Number: US-BAUSCH-2008BL002772

PATIENT
  Age: 55 Year
  Sex: Male
  Weight: 85 kg

DRUGS (2)
  1. OPCON-A [Suspect]
     Indication: EYE DISORDER
     Route: 047
     Dates: start: 20080620, end: 20080620
  2. TRIAMTERENE AND HYDROCHLOROTHIAZIDE [Concomitant]
     Indication: MENIERE'S DISEASE
     Route: 048
     Dates: start: 20060601

REACTIONS (5)
  - ABNORMAL SENSATION IN EYE [None]
  - ERYTHEMA OF EYELID [None]
  - EYE PRURITUS [None]
  - EYELID OEDEMA [None]
  - LACRIMATION INCREASED [None]
